FAERS Safety Report 11285442 (Version 1)
Quarter: 2015Q3

REPORT INFORMATION
  Report Type: Spontaneous
  Country: US (occurrence: US)
  Receive Date: 20150720
  Receipt Date: 20150720
  Transmission Date: 20151125
  Serious: No
  Sender: FDA-Public Use
  Company Number: US-TAKEDA-2015TUS005846

PATIENT
  Age: 75 Year
  Sex: Female
  Weight: 67.12 kg

DRUGS (1)
  1. ENTYVIO [Suspect]
     Active Substance: VEDOLIZUMAB
     Indication: CROHN^S DISEASE
     Dosage: 300 MG, Q8WEEKS
     Route: 042
     Dates: start: 20141002, end: 20150123

REACTIONS (5)
  - Fatigue [Recovered/Resolved]
  - Osteitis [Unknown]
  - Weight increased [Unknown]
  - Stomatitis [Unknown]
  - Myalgia [Recovered/Resolved]

NARRATIVE: CASE EVENT DATE: 20150123
